FAERS Safety Report 8252573-9 (Version None)
Quarter: 2012Q2

REPORT INFORMATION
  Report Type: 
  Country: None (occurrence: None)
  Receive Date: 20120402
  Receipt Date: 20120322
  Transmission Date: 20120825
  Serious: Yes (Death)
  Sender: FDA-Public Use
  Company Number: US-BAXTER-2012BAX001555

PATIENT
  Sex: 0

DRUGS (4)
  1. CYCLOPHOSPHAMIDE [Suspect]
     Indication: B-CELL LYMPHOMA
  2. DOXORUBICIN HCL [Suspect]
     Indication: B-CELL LYMPHOMA
  3. PREDNISONE TAB [Suspect]
     Indication: B-CELL LYMPHOMA
  4. VINCRISTINE [Suspect]
     Indication: B-CELL LYMPHOMA

REACTIONS (1)
  - DEATH [None]
